FAERS Safety Report 13286539 (Version 1)
Quarter: 2017Q1

REPORT INFORMATION
  Report Type: Spontaneous
  Country: CA (occurrence: CA)
  Receive Date: 20170302
  Receipt Date: 20170302
  Transmission Date: 20170428
  Serious: Yes (Hospitalization, Other)
  Sender: FDA-Public Use
  Company Number: CA-SA-2017SA029851

PATIENT
  Age: 47 Year
  Sex: Female

DRUGS (7)
  1. ORENCIA [Suspect]
     Active Substance: ABATACEPT
     Dosage: DOSAGE FORM: POWDER FOR SOLUTION INTRAVENOUS
     Route: 058
  2. RITUXAN [Suspect]
     Active Substance: RITUXIMAB
     Dosage: DOSAGE FORM: SOLUTION INTRAVENOUS
     Route: 065
  3. LEFLUNOMIDE. [Suspect]
     Active Substance: LEFLUNOMIDE
     Route: 048
  4. ACTEMRA [Suspect]
     Active Substance: TOCILIZUMAB
     Route: 065
  5. METHOTREXATE. [Suspect]
     Active Substance: METHOTREXATE
     Route: 065
  6. ENBREL [Suspect]
     Active Substance: ETANERCEPT
     Indication: RHEUMATOID ARTHRITIS
     Dosage: FORM:SOLUTION SUBCUTANEOUS
     Route: 065
  7. HUMIRA [Suspect]
     Active Substance: ADALIMUMAB
     Dosage: FREQUENCY: 1 EVERY 2 WEEK(S)?FORM:SOLUTION SUBCUTANEOUS
     Route: 065

REACTIONS (4)
  - Drug effect decreased [Unknown]
  - Hypersensitivity [Unknown]
  - Drug ineffective [Unknown]
  - Rheumatoid arthritis [Unknown]
